FAERS Safety Report 7086908-X (Version None)
Quarter: 2010Q4

REPORT INFORMATION
  Report Type: 
  Country: None (occurrence: None)
  Receive Date: 20101106
  Receipt Date: 20100915
  Transmission Date: 20110411
  Serious: No
  Sender: FDA-Public Use
  Company Number: US-WYE-H17404310

PATIENT
  Sex: Female
  Weight: 68.1 kg

DRUGS (4)
  1. PREMARIN [Suspect]
     Indication: MENOPAUSE
     Dosage: ^THE PURPLE ONES^
     Route: 048
     Dates: start: 20000101
  2. PREMARIN [Suspect]
     Indication: HOT FLUSH
     Dosage: 1.25 MG
     Route: 048
  3. PREMARIN [Suspect]
     Indication: ANXIETY
  4. PREMARIN [Suspect]
     Indication: NIGHT SWEATS

REACTIONS (3)
  - DRUG EFFECT DECREASED [None]
  - DRUG INEFFECTIVE [None]
  - PRODUCT QUALITY ISSUE [None]
